FAERS Safety Report 25176795 (Version 1)
Quarter: 2025Q2

REPORT INFORMATION
  Report Type: Spontaneous
  Country: US (occurrence: US)
  Receive Date: 20250409
  Receipt Date: 20250409
  Transmission Date: 20250717
  Serious: Yes (Other)
  Sender: GLENMARK
  Company Number: US-MLMSERVICE-20250321-PI453617-00295-2

PATIENT
  Age: 35 Year
  Sex: Female

DRUGS (6)
  1. OXCARBAZEPINE [Interacting]
     Active Substance: OXCARBAZEPINE
     Indication: Focal dyscognitive seizures
     Dosage: 1800 MILLIGRAM, OD
     Route: 065
  2. SERTRALINE [Interacting]
     Active Substance: SERTRALINE HYDROCHLORIDE
     Indication: Product used for unknown indication
     Dosage: 50 MILLIGRAM, QD (DOSE WHICH  WAS INCREASED BY 50 MG ON A WEEKLY BASES WITH THE INTENTION TO TARGET
     Route: 065
  3. SERTRALINE [Interacting]
     Active Substance: SERTRALINE HYDROCHLORIDE
     Dosage: 150 MILLIGRAM, QD
     Route: 065
  4. SERTRALINE [Interacting]
     Active Substance: SERTRALINE HYDROCHLORIDE
     Route: 065
  5. CLONAZEPAM [Concomitant]
     Active Substance: CLONAZEPAM
     Indication: Generalised anxiety disorder
     Dosage: 1 MILLIGRAM, QD (1 MG / DAY OF CLONAZEPAM WAS ADDED FOR A PERIOD OF 4 TO 6 WEEKS WITH THE PLAN TO TA
     Route: 065
  6. CLOBAZAM [Concomitant]
     Active Substance: CLOBAZAM
     Indication: Focal dyscognitive seizures
     Dosage: 15 MILLIGRAM, QD
     Route: 065

REACTIONS (2)
  - Drug interaction [Recovered/Resolved]
  - Hyponatraemia [Recovered/Resolved]
